FAERS Safety Report 17456315 (Version 2)
Quarter: 2020Q1

REPORT INFORMATION
  Report Type: Spontaneous
  Country: AU (occurrence: AU)
  Receive Date: 20200225
  Receipt Date: 20200325
  Transmission Date: 20200409
  Serious: Yes (Hospitalization, Other)
  Sender: FDA-Public Use
  Company Number: AU-PFIZER INC-2020063079

PATIENT
  Age: 69 Year
  Sex: Male

DRUGS (29)
  1. MIDAZOLAM. [Concomitant]
     Active Substance: MIDAZOLAM
     Dosage: 2 MG, @0757
     Dates: start: 20200211, end: 20200211
  2. MAGNESIUM SULFATE. [Concomitant]
     Active Substance: MAGNESIUM SULFATE
     Dosage: 4 MMOL @1002, @ 1121
     Dates: start: 20200211, end: 20200211
  3. ATORVASTATIN [Concomitant]
     Active Substance: ATORVASTATIN
     Dosage: 80 MG, TABLET, ORAL, NIGHT
     Route: 048
  4. NOREPINEPHRINE. [Concomitant]
     Active Substance: NOREPINEPHRINE
     Dosage: 4MG, 0823 BEGIN BAG 250 ML, NOREPINEPHRINE 0.01 MCG/KG/MIN
     Dates: start: 20200211
  5. EZETIMIBE. [Concomitant]
     Active Substance: EZETIMIBE
     Dosage: 10 MG, TABLET, ORAL, MORNING
     Route: 048
  6. PROTAMINE [Concomitant]
     Active Substance: PROTAMINE
     Dosage: 100 MG, @1217
     Dates: start: 20200211, end: 20200211
  7. CISATRACURIUM. [Concomitant]
     Active Substance: CISATRACURIUM
     Dosage: 10 MG, 0854 BEGAIN BAG 5ML ,0.1206 MG/KG/HR
     Dates: start: 20200211, end: 20200211
  8. HEPARIN [Suspect]
     Active Substance: HEPARIN SODIUM
     Dosage: 10000 @1001,@0728
  9. OXYCODONE [Concomitant]
     Active Substance: OXYCODONE
     Indication: PREMEDICATION
     Dosage: 20 MG, @0651 FOR CARDIAC PREMEDICATION
     Route: 048
     Dates: start: 20200211, end: 20200211
  10. VECURONIUM [Concomitant]
     Active Substance: VECURONIUM BROMIDE
     Dosage: 20 MG, @0824
     Dates: start: 20200211, end: 20200211
  11. CEFAZOLIN [Concomitant]
     Active Substance: CEFAZOLIN
     Dosage: 2 G, @0836 , @1228
     Dates: start: 20200211, end: 20200211
  12. DOPAMINE [Concomitant]
     Active Substance: DOPAMINE HYDROCHLORIDE
     Dosage: 0825 BEGIN BAG 250 ML, 5 MCG/KG/MIN,1136 BEGIN BAG 25O ML
     Dates: start: 20200211, end: 20200211
  13. ELECTROLYTE SOLUTIONS [ELECTROLYTES NOS] [Concomitant]
     Dosage: @0728, @0752 BEGIN BAG, 1000 ML
     Dates: start: 20200211, end: 20200211
  14. HEPARIN [Suspect]
     Active Substance: HEPARIN SODIUM
     Indication: CORONARY ARTERY BYPASS
     Dosage: 5000U/5ML AMPOULES
     Dates: start: 20200211, end: 20200211
  15. ASPIRIN (E.C.) [Concomitant]
     Active Substance: ASPIRIN
     Dosage: 100 MG, MORNING (WITH OR AFTER FOOD), TAKE WITH OR SOON AFTER FOOD
     Route: 048
  16. PERINDOPRIL [Concomitant]
     Active Substance: PERINDOPRIL
     Dosage: 2.5 MG, TABLET, ORAL, MORNING, TOTAL DOSE 7.5MG
     Route: 048
  17. PROPOFOL. [Concomitant]
     Active Substance: PROPOFOL
     Dosage: 200MG, 0802 BEGIN BAG 20ML PROPOFOL 1.2063MG/KG/HR
     Dates: start: 20200211, end: 20200211
  18. HEPARIN [Suspect]
     Active Substance: HEPARIN SODIUM
     Dosage: 35000 @0928
  19. MIDAZOLAM. [Concomitant]
     Active Substance: MIDAZOLAM
     Dosage: 1 MG, @0802/ @0824
  20. KETAMINE [Concomitant]
     Active Substance: KETAMINE
     Dosage: 4 MMOL @1002,@1211
     Dates: start: 20200211, end: 20200211
  21. MAGNESIUM SULFATE. [Concomitant]
     Active Substance: MAGNESIUM SULFATE
     Dosage: 10 MMOL @1121
  22. PERINDOPRIL [Concomitant]
     Active Substance: PERINDOPRIL
     Dosage: 5 MG, MORNING, TOTAL DOSE 7.5MG
     Route: 048
  23. SPIRONOLACTONE. [Concomitant]
     Active Substance: SPIRONOLACTONE
     Dosage: 12.5 MG, MORNING
     Route: 048
  24. NITROLINGUAL [Concomitant]
     Active Substance: NITROGLYCERIN
     Dosage: 400 UG, REPEAT AFTER 5 MINUTES AS NEEDED
  25. METOCLOPRAMID [METOCLOPRAMIDE] [Concomitant]
     Active Substance: METOCLOPRAMIDE
     Indication: PREMEDICATION
     Dosage: 10 MG, @0651 FOR CARDIAC PREMEDICATION
     Route: 048
     Dates: start: 20200211, end: 20200211
  26. PROTAMINE [Concomitant]
     Active Substance: PROTAMINE
     Dosage: 200 MG, @1223
  27. EPINEPHRINE. [Concomitant]
     Active Substance: EPINEPHRINE
     Dosage: 1155 BEGIN BAG 250 ML
     Dates: start: 20200211, end: 20200211
  28. FENTANYL. [Concomitant]
     Active Substance: FENTANYL
     Dosage: 250 MCG, @0824,@0831,@0849,0855,@0908@1213
     Dates: start: 20200211, end: 20200211
  29. BISOPROLOL [Concomitant]
     Active Substance: BISOPROLOL
     Dosage: 2.5 MG, TABLET, ORAL, MORNING
     Route: 048

REACTIONS (3)
  - Left ventricular dysfunction [Unknown]
  - Coronary artery disease [Unknown]
  - Drug ineffective [Recovered/Resolved]

NARRATIVE: CASE EVENT DATE: 20200128
